FAERS Safety Report 6743123-4 (Version None)
Quarter: 2010Q2

REPORT INFORMATION
  Report Type: 
  Country: None (occurrence: None)
  Receive Date: 20100527
  Receipt Date: 20100513
  Transmission Date: 20101027
  Serious: Yes (Other)
  Sender: FDA-Public Use
  Company Number: IT-MYLANLABS-2010S1008525

PATIENT
  Age: 54 Year
  Sex: Female

DRUGS (1)
  1. LOSARTAN/HYDROCHLOROTHIAZIDE TABLETS [Suspect]
     Indication: DRUG USE FOR UNKNOWN INDICATION
     Dates: start: 20100420, end: 20100506

REACTIONS (3)
  - MICTURITION DISORDER [None]
  - PAIN [None]
  - WEIGHT INCREASED [None]
